FAERS Safety Report 11514480 (Version 1)
Quarter: 2015Q3

REPORT INFORMATION
  Report Type: Spontaneous
  Country: BR (occurrence: BR)
  Receive Date: 20150916
  Receipt Date: 20150916
  Transmission Date: 20151125
  Serious: Yes (Other)
  Sender: FDA-Public Use
  Company Number: BR-PFIZER INC-2015306671

PATIENT
  Age: 69 Year
  Sex: Female
  Weight: 46 kg

DRUGS (5)
  1. SELOZOK [Suspect]
     Active Substance: METOPROLOL SUCCINATE
     Dosage: 25 MG, 1X/DAY (1/2 TABLET/EVERY MORNING)
     Route: 048
     Dates: start: 201508, end: 20150903
  2. ACERTIL [Concomitant]
     Indication: BLOOD PRESSURE ABNORMAL
     Dosage: AT NIGHT
     Route: 048
     Dates: start: 201505
  3. SELOZOK [Suspect]
     Active Substance: METOPROLOL SUCCINATE
     Indication: BLOOD PRESSURE ABNORMAL
     Dosage: 50 MG, 1X/DAY (EVERY MORNING)
     Route: 048
     Dates: start: 201505, end: 2015
  4. OLCADIL [Concomitant]
     Active Substance: CLOXAZOLAM
     Indication: ANXIETY
     Dosage: EVERY 4 DAYS
     Route: 048
  5. ATENOLOL. [Suspect]
     Active Substance: ATENOLOL
     Indication: BLOOD PRESSURE ABNORMAL
     Dosage: 25 MG, 1X/DAY (EVERY MORNING)
     Route: 048
     Dates: start: 1999, end: 201505

REACTIONS (4)
  - Blood pressure diastolic decreased [Recovered/Resolved]
  - Tachycardia [Recovered/Resolved]
  - Asthmatic crisis [Recovered/Resolved]
  - Blood pressure increased [Recovered/Resolved]

NARRATIVE: CASE EVENT DATE: 2015
